FAERS Safety Report 9190786 (Version 2)
Quarter: 2013Q1

REPORT INFORMATION
  Report Type: Spontaneous
  Country: JP (occurrence: JP)
  Receive Date: 20130326
  Receipt Date: 20130328
  Transmission Date: 20140127
  Serious: Yes (Hospitalization, Other)
  Sender: FDA-Public Use
  Company Number: JP-ASTRAZENECA-2013SE18907

PATIENT
  Sex: 0

DRUGS (1)
  1. XYLOCAINE JELLY [Suspect]
     Indication: LOCAL ANAESTHESIA
     Route: 061
     Dates: start: 20130307

REACTIONS (1)
  - Anaphylactoid reaction [Recovered/Resolved]
